FAERS Safety Report 9174964 (Version 1)
Quarter: 2013Q1

REPORT INFORMATION
  Report Type: Spontaneous
  Country: None (occurrence: US)
  Receive Date: 20130320
  Receipt Date: 20130320
  Transmission Date: 20140127
  Serious: No
  Sender: FDA-Public Use
  Company Number: US-TARO-2013P1001184

PATIENT
  Sex: Female

DRUGS (10)
  1. FLUOROURACIL [Suspect]
     Route: 061
     Dates: start: 20130103
  2. IPRATROPIUM BROMIDE NASAL SPRAY [Concomitant]
     Route: 055
  3. LORAZEPAM [Concomitant]
     Route: 048
  4. ^LODIPINE^ [Concomitant]
     Route: 048
  5. BENICAR [Concomitant]
     Route: 048
  6. SYNTHROID [Concomitant]
     Route: 048
  7. ZETIA [Concomitant]
     Route: 048
  8. TYLENOL [Concomitant]
  9. ADVIL [Concomitant]
  10. ANACIN [Concomitant]

REACTIONS (2)
  - Blood pressure increased [Not Recovered/Not Resolved]
  - Blood pressure fluctuation [Not Recovered/Not Resolved]
